FAERS Safety Report 12847673 (Version 2)
Quarter: 2016Q4

REPORT INFORMATION
  Report Type: Report from Study
  Country: None (occurrence: CA)
  Receive Date: 20161014
  Receipt Date: 20161222
  Transmission Date: 20170207
  Serious: Yes (Hospitalization)
  Sender: FDA-Public Use
  Company Number: CA-ABBVIE-16P-028-1747765-00

PATIENT
  Age: 46 Year
  Sex: Female
  Weight: 68.4 kg

DRUGS (4)
  1. OMBITASVIR/PARITAPREVIR/RITONAVIR [Suspect]
     Active Substance: OMBITASVIR\PARITAPREVIR\RITONAVIR
     Indication: HEPATITIS C
     Dosage: OMBITASVIR/ PARITAPREVIR/RITONAVIR 150/100/25MG ONCE DAILY
     Route: 048
     Dates: start: 20160901, end: 20160927
  2. OMBITASVIR/PARITAPREVIR/RITONAVIR [Suspect]
     Active Substance: OMBITASVIR\PARITAPREVIR\RITONAVIR
     Dosage: OMBITASVIR/ PARITAPREVIR/RITONAVIR 150/100/25MG ONCE DAILY
     Route: 048
     Dates: start: 20161004, end: 20161124
  3. DASABUVIR [Suspect]
     Active Substance: DASABUVIR
     Indication: HEPATITIS C
     Route: 048
     Dates: start: 20160901, end: 20160927
  4. DASABUVIR [Suspect]
     Active Substance: DASABUVIR
     Route: 048
     Dates: start: 20161004, end: 20161124

REACTIONS (1)
  - Abdominal pain [Recovered/Resolved]

NARRATIVE: CASE EVENT DATE: 20160929
